FAERS Safety Report 6600705-8 (Version None)
Quarter: 2010Q1

REPORT INFORMATION
  Report Type: 
  Country: None (occurrence: None)
  Receive Date: 20100223
  Receipt Date: 20100223
  Transmission Date: 20100710
  Serious: No
  Sender: FDA-Public Use
  Company Number: None

PATIENT
  Sex: Female
  Weight: 67.1324 kg

DRUGS (1)
  1. NORCO [Suspect]
     Indication: OSTEOARTHRITIS
     Dosage: 750 1 Q6HR PRN/PAIN PO
     Route: 048

REACTIONS (2)
  - HEADACHE [None]
  - TONGUE OEDEMA [None]
